FAERS Safety Report 8111688-6 (Version None)
Quarter: 2012Q1

REPORT INFORMATION
  Report Type: 
  Country: None (occurrence: None)
  Receive Date: 20120202
  Receipt Date: 20120202
  Transmission Date: 20120608
  Serious: Yes (Life-Threatening, Hospitalization)
  Sender: FDA-Public Use
  Company Number: None

PATIENT
  Sex: Male
  Weight: 109.5 kg

DRUGS (2)
  1. VIVITROL [Suspect]
     Indication: DRUG DEPENDENCE
     Dosage: 380MG MONTHLY IM
     Route: 030
     Dates: start: 20111014
  2. VIVITROL [Suspect]
     Indication: DRUG DEPENDENCE
     Dosage: 380MG MONTHLY IM
     Route: 030
     Dates: start: 20111114

REACTIONS (3)
  - TREATMENT NONCOMPLIANCE [None]
  - DEPRESSION [None]
  - SUICIDE ATTEMPT [None]
